FAERS Safety Report 19657244 (Version 1)
Quarter: 2021Q3

REPORT INFORMATION
  Report Type: Spontaneous
  Country: IE (occurrence: IE)
  Receive Date: 20210804
  Receipt Date: 20210804
  Transmission Date: 20211014
  Serious: Yes (Hospitalization, Other)
  Sender: FDA-Public Use
  Company Number: IE-VELOXIS PHARMACEUTICALS-2021VELIE-000520

PATIENT
  Age: 59 Year
  Sex: Female

DRUGS (10)
  1. TACROLIMUS. [Interacting]
     Active Substance: TACROLIMUS
     Indication: IMMUNOSUPPRESSANT DRUG THERAPY
  2. HEPARIN [Concomitant]
     Active Substance: HEPARIN SODIUM
     Indication: PULMONARY EMBOLISM
     Dosage: UNK
  3. MYCOPHENOLATE MOFETIL. [Suspect]
     Active Substance: MYCOPHENOLATE MOFETIL
     Indication: IMMUNOSUPPRESSANT DRUG THERAPY
  4. FLUCYTOSINE. [Suspect]
     Active Substance: FLUCYTOSINE
     Indication: CANDIDA INFECTION
     Dosage: UNK
     Route: 048
  5. MYCOPHENOLATE MOFETIL. [Suspect]
     Active Substance: MYCOPHENOLATE MOFETIL
     Indication: PROPHYLAXIS AGAINST TRANSPLANT REJECTION
     Dosage: UNK
  6. FLUCONAZOLE. [Interacting]
     Active Substance: FLUCONAZOLE
     Indication: CANDIDA INFECTION
     Dosage: LIFELONG
     Route: 048
  7. MIDODRINE [Concomitant]
     Active Substance: MIDODRINE
     Indication: LABILE BLOOD PRESSURE
     Dosage: UNK
  8. TAMOXIFEN [Concomitant]
     Active Substance: TAMOXIFEN
     Indication: BREAST CANCER
     Dosage: UNK
  9. TACROLIMUS. [Suspect]
     Active Substance: TACROLIMUS
     Indication: PROPHYLAXIS AGAINST TRANSPLANT REJECTION
     Dosage: UNK
  10. AMPHOTERICIN B. [Suspect]
     Active Substance: AMPHOTERICIN B
     Indication: CANDIDA INFECTION
     Dosage: UNK

REACTIONS (20)
  - Depressed mood [Recovering/Resolving]
  - Toxicity to various agents [Recovered/Resolved]
  - Device related infection [Recovered/Resolved]
  - Decreased appetite [Recovering/Resolving]
  - Pulmonary embolism [Recovering/Resolving]
  - Fall [Recovering/Resolving]
  - Acute kidney injury [Recovered/Resolved]
  - Perforation [Recovering/Resolving]
  - Candida infection [Recovered/Resolved]
  - Confusional state [Recovering/Resolving]
  - Drug interaction [Recovering/Resolving]
  - Tricuspid valve stenosis [Recovering/Resolving]
  - Sepsis [Recovered/Resolved]
  - Urinary tract infection [Recovered/Resolved]
  - Endocarditis candida [Recovered/Resolved]
  - Fungaemia [Recovering/Resolving]
  - Disseminated intravascular coagulation [Recovered/Resolved]
  - Systemic candida [Recovered/Resolved]
  - Drug level increased [Recovered/Resolved]
  - Off label use [Unknown]
